FAERS Safety Report 9958346 (Version 4)
Quarter: 2014Q2

REPORT INFORMATION
  Report Type: Report from Study
  Country: GB (occurrence: GB)
  Receive Date: 20140305
  Receipt Date: 20140528
  Transmission Date: 20141212
  Serious: Yes (Death, Hospitalization)
  Sender: FDA-Public Use
  Company Number: GB-ROCHE-1358721

PATIENT
  Age: 79 Year
  Sex: Male

DRUGS (8)
  1. RANIBIZUMAB [Suspect]
     Indication: PRODUCT USED FOR UNKNOWN INDICATION
     Route: 065
     Dates: start: 2010
  2. RANIBIZUMAB [Suspect]
     Route: 065
     Dates: start: 20121221
  3. RANIBIZUMAB [Suspect]
     Route: 065
     Dates: start: 20131215
  4. RANIBIZUMAB [Suspect]
     Route: 065
     Dates: start: 20140221
  5. ALLOPURINOL [Concomitant]
     Route: 065
     Dates: start: 20091103
  6. ALLOPURINOL [Concomitant]
     Route: 065
     Dates: start: 20140106
  7. BETNOVATE [Concomitant]
     Route: 065
     Dates: start: 1953
  8. BETNOVATE [Concomitant]
     Route: 065
     Dates: start: 20140106

REACTIONS (3)
  - Death [Fatal]
  - Cellulitis [Recovered/Resolved]
  - Intraocular pressure increased [Recovered/Resolved]
